FAERS Safety Report 19157128 (Version 2)
Quarter: 2021Q4

REPORT INFORMATION
  Report Type: Spontaneous
  Country: PT (occurrence: PT)
  Receive Date: 20210420
  Receipt Date: 20211102
  Transmission Date: 20220303
  Serious: Yes (Other)
  Sender: FDA-Public Use
  Company Number: None

PATIENT
  Age: 55 Year
  Sex: Male
  Weight: 60 kg

DRUGS (9)
  1. CISPLATIN [Suspect]
     Active Substance: CISPLATIN
     Indication: Squamous cell carcinoma of the tongue
     Dosage: 50MG/50ML; ADMINISTERED 15-20 MIN AFTER PEMBROLIZUMAB
     Route: 042
  2. PEMETREXED [Concomitant]
     Active Substance: PEMETREXED
     Route: 042
  3. POTASSIUM CHLORIDE [Concomitant]
     Active Substance: POTASSIUM CHLORIDE
     Indication: Premedication
  4. DEXAMETHASONE [Concomitant]
     Active Substance: DEXAMETHASONE
     Indication: Premedication
  5. SILODOSIN [Concomitant]
     Active Substance: SILODOSIN
     Route: 048
  6. LEVOTHYROXINE SODIUM [Concomitant]
     Active Substance: LEVOTHYROXINE SODIUM
     Route: 048
  7. PALONOSETRON [Concomitant]
     Active Substance: PALONOSETRON
     Indication: Premedication
  8. FOSAPREPITANT [Concomitant]
     Active Substance: FOSAPREPITANT
     Indication: Premedication
  9. PEMBROLIZUMAB [Concomitant]
     Active Substance: PEMBROLIZUMAB
     Dosage: ADMINISTERED AFTER PREMEDICATION
     Route: 042
     Dates: start: 20210319

REACTIONS (7)
  - Presyncope [Recovered/Resolved]
  - Dizziness [Recovered/Resolved]
  - Tachycardia [Recovered/Resolved]
  - Choking sensation [Recovered/Resolved]
  - Dry mouth [Recovered/Resolved]
  - Hypotension [Recovered/Resolved]
  - Stomatitis [Recovered/Resolved]

NARRATIVE: CASE EVENT DATE: 20210201
